FAERS Safety Report 9382790 (Version 3)
Quarter: 2013Q3

REPORT INFORMATION
  Report Type: Spontaneous
  Country: IT (occurrence: IT)
  Receive Date: 20130703
  Receipt Date: 20130802
  Transmission Date: 20140515
  Serious: Yes (Hospitalization)
  Sender: FDA-Public Use
  Company Number: IT-PFIZER INC-2013196513

PATIENT
  Age: 76 Year
  Sex: Female

DRUGS (3)
  1. XANAX [Suspect]
     Indication: INSOMNIA
     Dosage: UNK
     Route: 048
  2. XANAX [Suspect]
     Dosage: 5 GTT, 2X/DAY
     Route: 048
  3. HALCION [Concomitant]
     Indication: INSOMNIA
     Dosage: UNK

REACTIONS (4)
  - Intentional overdose [Recovering/Resolving]
  - Intentional self-injury [Recovering/Resolving]
  - Sopor [Recovering/Resolving]
  - Vomiting [Recovering/Resolving]
